FAERS Safety Report 7040393-2 (Version None)
Quarter: 2010Q4

REPORT INFORMATION
  Report Type: 
  Country: None (occurrence: None)
  Receive Date: 20101012
  Receipt Date: 20100930
  Transmission Date: 20110411
  Serious: Yes (Other)
  Sender: FDA-Public Use
  Company Number: PHHY2010US65872

PATIENT
  Sex: Female

DRUGS (4)
  1. RECLAST [Suspect]
     Dosage: UNK
  2. CALCIUM W/VITAMIN D NOS [Concomitant]
  3. PLAQUENIL [Concomitant]
  4. LIPITOR [Concomitant]

REACTIONS (5)
  - CHILLS [None]
  - DIARRHOEA [None]
  - FRACTURE [None]
  - NAUSEA [None]
  - VOMITING [None]
